FAERS Safety Report 21371900 (Version 1)
Quarter: 2022Q3

REPORT INFORMATION
  Report Type: Spontaneous
  Country: BR (occurrence: BR)
  Receive Date: 20220923
  Receipt Date: 20220923
  Transmission Date: 20221026
  Serious: Yes (Hospitalization, Other)
  Sender: FDA-Public Use
  Company Number: BR-009507513-2209BRA006106

PATIENT
  Age: 87 Year
  Sex: Female
  Weight: 56 kg

DRUGS (7)
  1. JANUMET [Suspect]
     Active Substance: METFORMIN HYDROCHLORIDE\SITAGLIPTIN PHOSPHATE
     Indication: Diabetes mellitus
     Dosage: ONCE A DAY (FORMULATION: TABLETS 50/1000 MG)
     Route: 048
  2. JANUMET XR [Suspect]
     Active Substance: METFORMIN HYDROCHLORIDE\SITAGLIPTIN PHOSPHATE
  3. ASPIRIN [Concomitant]
     Active Substance: ASPIRIN
     Indication: Hypertension
     Dosage: 100 MG (ONCE A DAY IN THE MORNING)
  4. CALCIUM\CHOLECALCIFEROL [Concomitant]
     Active Substance: CALCIUM\CHOLECALCIFEROL
     Dosage: ONCE A DAY IN THE MORNING
  5. GINKGO [Concomitant]
     Active Substance: GINKGO
     Indication: Ear disorder
     Dosage: 120MG ONCE DAILY
  6. HYDROCHLOROTHIAZIDE [Concomitant]
     Active Substance: HYDROCHLOROTHIAZIDE
     Indication: Hypertension
     Dosage: 25MG ONCE DAILY IN THE MORNING
  7. ZEROLAC [Concomitant]
     Dosage: 10000FCC ONCE DAILY BEFORE BREAKFAST

REACTIONS (12)
  - Fall [Unknown]
  - Limb injury [Unknown]
  - Deafness [Unknown]
  - Dairy intolerance [Unknown]
  - Tinnitus [Unknown]
  - Decreased appetite [Unknown]
  - Weight decreased [Unknown]
  - Blood glucose decreased [Unknown]
  - Product dose omission issue [Unknown]
  - Inappropriate schedule of product administration [Unknown]
  - Product name confusion [Unknown]
  - Incorrect dose administered [Unknown]

NARRATIVE: CASE EVENT DATE: 20210101
